FAERS Safety Report 11627354 (Version 2)
Quarter: 2016Q3

REPORT INFORMATION
  Report Type: Report from Study
  Country: US (occurrence: US)
  Receive Date: 20151013
  Receipt Date: 20160922
  Transmission Date: 20161109
  Serious: No
  Sender: FDA-Public Use
  Company Number: US-AMGEN-USASL2015013230

PATIENT
  Age: 54 Year
  Sex: Male

DRUGS (38)
  1. NEUPOGEN [Suspect]
     Active Substance: FILGRASTIM
     Indication: PRODUCT USED FOR UNKNOWN INDICATION
     Dosage: 480 MG, UNK
     Route: 058
  2. EPOETIN ALFA [Concomitant]
     Active Substance: ERYTHROPOIETIN
     Dosage: 40000 UNIT, UNK
     Route: 058
     Dates: start: 20100809, end: 20100809
  3. DECADRON [Concomitant]
     Active Substance: DEXAMETHASONE
     Dosage: IN 50 CC NS (10 MG), UNK
     Route: 042
     Dates: start: 20100601, end: 20100601
  4. BENADRYL [Concomitant]
     Active Substance: DIPHENHYDRAMINE HYDROCHLORIDE
     Dosage: 25 MG, UNK
  5. ALIMTA [Concomitant]
     Active Substance: PEMETREXED DISODIUM
     Dosage: IN 100CC NS (900 MG)
     Route: 042
     Dates: start: 20100729, end: 20100729
  6. VITAMIN B12 [Concomitant]
     Active Substance: CYANOCOBALAMIN
     Dosage: 1000 MCG, UNK
     Route: 030
     Dates: start: 20110428, end: 20110428
  7. CARBOPLATIN. [Concomitant]
     Active Substance: CARBOPLATIN
     Dosage: IN 250 CC NS (400 MG), UNK
     Route: 041
     Dates: start: 20100601, end: 20100601
  8. MANNITOL. [Concomitant]
     Active Substance: MANNITOL
     Dosage: 50 ML, UNK
     Route: 042
  9. BENADRYL [Concomitant]
     Active Substance: DIPHENHYDRAMINE HYDROCHLORIDE
     Dosage: 50 MG, UNK
  10. FOLIC ACID. [Concomitant]
     Active Substance: FOLIC ACID
     Dosage: 1 MG, 1 IN 1 D
  11. ALIMTA [Concomitant]
     Active Substance: PEMETREXED DISODIUM
     Dosage: IN 100CC NS (800 MG)
     Route: 041
     Dates: start: 20110428, end: 20110428
  12. KYTRIL [Suspect]
     Active Substance: GRANISETRON HYDROCHLORIDE
     Indication: PRODUCT USED FOR UNKNOWN INDICATION
     Dosage: 2 MG, UNK
     Route: 065
  13. ATIVAN [Concomitant]
     Active Substance: LORAZEPAM
     Dosage: 1 MG, UNK
  14. ALOXI [Concomitant]
     Active Substance: PALONOSETRON HYDROCHLORIDE
     Dosage: 250 MCG, UNK
     Route: 042
     Dates: start: 20110404, end: 20110404
  15. ALOXI [Concomitant]
     Active Substance: PALONOSETRON HYDROCHLORIDE
     Dosage: 250 MCG, UNK
     Route: 042
     Dates: start: 20110428, end: 20110428
  16. DEXAMETHASONE. [Concomitant]
     Active Substance: DEXAMETHASONE
     Dosage: 4 MG, 2 IN 1 D
     Route: 048
  17. ARANESP [Concomitant]
     Active Substance: DARBEPOETIN ALFA
     Dosage: 500 MCG, UNK
  18. VITAMIN B12 [Concomitant]
     Active Substance: CYANOCOBALAMIN
     Dosage: 1000 MCG, UNK
     Route: 030
     Dates: start: 20100729, end: 20100729
  19. VITAMIN B12 [Concomitant]
     Active Substance: CYANOCOBALAMIN
     Dosage: 1000 UNK, UNK
     Route: 058
     Dates: start: 20100819, end: 20100819
  20. AMOXICILLIN. [Concomitant]
     Active Substance: AMOXICILLIN
     Dosage: UNK
  21. LASIX [Concomitant]
     Active Substance: FUROSEMIDE
     Dosage: 20 MG, UNK
  22. ALIMTA [Concomitant]
     Active Substance: PEMETREXED DISODIUM
     Dosage: IN 100CC NS (800 MG)
     Route: 041
     Dates: start: 20110404, end: 20110404
  23. KYTRIL [Suspect]
     Active Substance: GRANISETRON HYDROCHLORIDE
     Dosage: 1 MG, UNK
     Route: 065
  24. EPOETIN ALFA [Concomitant]
     Active Substance: ERYTHROPOIETIN
     Dosage: 40000 UNIT, UNK
     Route: 058
     Dates: start: 20110404, end: 20110404
  25. ALOXI [Concomitant]
     Active Substance: PALONOSETRON HYDROCHLORIDE
     Dosage: 250 MCG, UNK
     Route: 042
     Dates: start: 20100729, end: 20100729
  26. VITAMIN B12 [Concomitant]
     Active Substance: CYANOCOBALAMIN
     Dosage: 1000 MCG, UNK
     Route: 030
     Dates: start: 20110404, end: 20110404
  27. ALIMTA [Concomitant]
     Active Substance: PEMETREXED DISODIUM
     Dosage: IN 100CC NS (900 MG)
     Route: 041
     Dates: start: 20100601, end: 20100601
  28. POTASSIUM CHLORIDE. [Concomitant]
     Active Substance: POTASSIUM CHLORIDE
     Dosage: 20 MCG, UNK
  29. CISPLATIN. [Concomitant]
     Active Substance: CISPLATIN
     Dosage: 40 MG, UNK
  30. ALIMTA [Concomitant]
     Active Substance: PEMETREXED DISODIUM
     Dosage: 1000 MG, UNK
  31. NAVELBINE [Concomitant]
     Active Substance: VINORELBINE TARTRATE
     Dosage: UNK
  32. AVASTIN [Suspect]
     Active Substance: BEVACIZUMAB
     Indication: MALIGNANT NEOPLASM OF PLEURA
     Dosage: 400 MG, 1 IN 2 WK
     Route: 042
     Dates: start: 20080513
  33. ALOXI [Concomitant]
     Active Substance: PALONOSETRON HYDROCHLORIDE
     Dosage: 250 MCG, UNK
     Route: 042
     Dates: start: 20100601, end: 20100601
  34. ALIMTA [Concomitant]
     Active Substance: PEMETREXED DISODIUM
     Dosage: IN 100CC NS (900 MG)
     Route: 041
     Dates: start: 20100819, end: 20100819
  35. AVASTIN [Suspect]
     Active Substance: BEVACIZUMAB
     Indication: MESOTHELIOMA
     Dosage: 600 MG, UNK
     Route: 042
     Dates: start: 20080930
  36. VITAMIN B12 [Concomitant]
     Active Substance: CYANOCOBALAMIN
     Dosage: 1000 MCG, UNK
     Route: 058
     Dates: start: 20100601, end: 20100601
  37. TYLENOL [Concomitant]
     Active Substance: ACETAMINOPHEN
     Dosage: 650 MG, UNK
  38. DEXAMETHASONE. [Concomitant]
     Active Substance: DEXAMETHASONE
     Dosage: 20 MG, UNK
     Route: 048

REACTIONS (14)
  - Cough [Unknown]
  - Pain in extremity [Unknown]
  - Chest pain [Unknown]
  - Diarrhoea [Unknown]
  - Balance disorder [Unknown]
  - Sinusitis [Unknown]
  - Nausea [Unknown]
  - Back pain [Unknown]
  - Fatigue [Unknown]
  - Dyspnoea [Unknown]
  - Malaise [Unknown]
  - Off label use [Unknown]
  - Asthenia [Unknown]
  - Headache [Unknown]
